FAERS Safety Report 8035473-9 (Version None)
Quarter: 2012Q1

REPORT INFORMATION
  Report Type: 
  Country: None (occurrence: None)
  Receive Date: 20120110
  Receipt Date: 20120110
  Transmission Date: 20120608
  Serious: Yes (Hospitalization)
  Sender: FDA-Public Use
  Company Number: None

PATIENT
  Sex: Male
  Weight: 83.5 kg

DRUGS (5)
  1. SOLIRIS [Suspect]
     Indication: PROPHYLAXIS AGAINST TRANSPLANT REJECTION
     Dosage: 1200 MG 3 IV 900 MG 5 IV 600 MG 17 IV
     Route: 042
     Dates: start: 20111104
  2. SOLIRIS [Suspect]
     Indication: PROPHYLAXIS AGAINST TRANSPLANT REJECTION
     Dosage: 1200 MG 3 IV 900 MG 5 IV 600 MG 17 IV
     Route: 042
     Dates: start: 20111110
  3. SOLIRIS [Suspect]
     Indication: PROPHYLAXIS AGAINST TRANSPLANT REJECTION
     Dosage: 1200 MG 3 IV 900 MG 5 IV 600 MG 17 IV
     Route: 042
     Dates: start: 20111118
  4. SOLIRIS [Suspect]
     Indication: PROPHYLAXIS AGAINST TRANSPLANT REJECTION
     Dosage: 1200 MG 3 IV 900 MG 5 IV 600 MG 17 IV
     Route: 042
     Dates: start: 20111103
  5. ECULIZUMAB [Concomitant]

REACTIONS (5)
  - DYSPNOEA [None]
  - ACIDOSIS [None]
  - PRESYNCOPE [None]
  - OEDEMA PERIPHERAL [None]
  - DIALYSIS [None]
